FAERS Safety Report 9049555 (Version 2)
Quarter: 2013Q1

REPORT INFORMATION
  Report Type: Report from Study
  Country: US (occurrence: US)
  Receive Date: 20130205
  Receipt Date: 20130211
  Transmission Date: 20140127
  Serious: Yes (Hospitalization)
  Sender: FDA-Public Use
  Company Number: US-BAXTER-2013BAX004273

PATIENT
  Sex: Male

DRUGS (3)
  1. HEMOFIL M [Suspect]
     Indication: HAEMOPHILIA
     Route: 042
  2. HEMOFIL M [Suspect]
     Dosage: 1500 UNITS
     Route: 042
  3. KOATE-DVI [Suspect]
     Indication: HAEMOPHILIA
     Route: 065
     Dates: start: 201212, end: 201301

REACTIONS (3)
  - Blood urine present [Not Recovered/Not Resolved]
  - Haemorrhoidal haemorrhage [Recovered/Resolved]
  - Appendicitis perforated [Recovered/Resolved]
